FAERS Safety Report 4783039-6 (Version None)
Quarter: 2005Q3

REPORT INFORMATION
  Report Type: 
  Country: None (occurrence: None)
  Receive Date: 20050927
  Receipt Date: 20050914
  Transmission Date: 20060218
  Serious: Yes (Other)
  Sender: FDA-Public Use
  Company Number: 2005127443

PATIENT
  Age: 37 Year
  Sex: Male
  Weight: 104.3273 kg

DRUGS (2)
  1. BENADRYL [Suspect]
     Indication: ANXIETY
     Dosage: 500 TO 600 MG IN 3 1/2 HOURS, ORAL
     Route: 048
     Dates: start: 20050914, end: 20050914
  2. METHADONE HCL [Concomitant]

REACTIONS (3)
  - ANXIETY [None]
  - CONDITION AGGRAVATED [None]
  - FEELING ABNORMAL [None]
